FAERS Safety Report 9475695 (Version 2)
Quarter: 2013Q3

REPORT INFORMATION
  Report Type: Report from Study
  Country: NL (occurrence: NL)
  Receive Date: 20130826
  Receipt Date: 20130913
  Transmission Date: 20140515
  Serious: Yes (Death)
  Sender: FDA-Public Use
  Company Number: PHHY2013NL091622

PATIENT
  Sex: Male

DRUGS (4)
  1. ZOMETA [Suspect]
     Indication: PROSTATE CANCER METASTATIC
     Dosage: 4 MG/ 100 ML, PER 6 WEEKS
     Route: 042
  2. ZOMETA [Suspect]
     Dosage: 4 MG/ 100 ML, PER 6 WEEKS
     Route: 042
     Dates: start: 20120711
  3. ZOMETA [Suspect]
     Dosage: 4 MG/ 100 ML, PER 6 WEEKS
     Route: 042
     Dates: start: 20130619
  4. ZOMETA [Suspect]
     Dosage: 4 MG/ 100 ML, PER 6 WEEKS
     Route: 042
     Dates: start: 20130802

REACTIONS (3)
  - General physical health deterioration [Fatal]
  - Coronary artery disease [Fatal]
  - Prostate cancer metastatic [Fatal]
